FAERS Safety Report 9161456 (Version 1)
Quarter: 2013Q1

REPORT INFORMATION
  Report Type: Spontaneous
  Country: US (occurrence: US)
  Receive Date: 20130313
  Receipt Date: 20130313
  Transmission Date: 20140127
  Serious: No
  Sender: FDA-Public Use
  Company Number: US-009507513-1303USA002774

PATIENT
  Sex: 0

DRUGS (1)
  1. NASONEX [Suspect]
     Dosage: TWO SPRAYS IN EACH NOSTRIL ONCE DAILY
     Route: 045
     Dates: start: 20130305

REACTIONS (3)
  - Device malfunction [Unknown]
  - Drug dose omission [Unknown]
  - No adverse event [Unknown]
